FAERS Safety Report 7080624-6 (Version None)
Quarter: 2010Q4

REPORT INFORMATION
  Report Type: 
  Country: None (occurrence: None)
  Receive Date: 20101103
  Receipt Date: 20101025
  Transmission Date: 20110411
  Serious: Yes (Life-Threatening, Disabling)
  Sender: FDA-Public Use
  Company Number: JP-BRISTOL-MYERS SQUIBB COMPANY-13769260

PATIENT
  Age: 24 Year
  Sex: Male

DRUGS (10)
  1. VIDEX [Suspect]
     Indication: HIV INFECTION
     Dosage: 19DEC94-7MAR97(125MG)810D 8MAR97-21JUL01(300MG)1597D 22JUL-14MAY04(400MG)1028D
     Route: 048
     Dates: start: 19941119, end: 20040514
  2. EFAVIRENZ CAPS [Suspect]
     Indication: HIV INFECTION
     Dosage: 24-25JUL00(2D)-600MG 25SEP00-02OCT00(8D)
     Route: 048
     Dates: start: 20000724, end: 20001002
  3. ZERIT [Suspect]
     Indication: HIV INFECTION
     Dosage: 25AUG97-27FEB98(187D) 27FEB-03AUG98(158) 3AUG-9NOV(99) 9NOV98-19JN99(223) 25DC00-20OC01(300D)
     Route: 048
     Dates: start: 19970825, end: 20011020
  4. INDINIVIR SULFATE [Suspect]
     Indication: HIV INFECTION
     Route: 048
     Dates: start: 20000308, end: 20000524
  5. ZIAGEN [Suspect]
     Dosage: 24JUL-25JUL00(2D)600MG 20OCT-27OCT01(8D)600MG INTERRUPTED ON 25JUL00
     Route: 048
     Dates: start: 20000724, end: 20011027
  6. INVIRASE [Suspect]
     Indication: HIV INFECTION
     Dosage: 19JUN99-18MAR00(274D) 24MAY00-24DEC00(215D)800MG
     Route: 048
     Dates: start: 19990619, end: 20001224
  7. RITONAVIR [Suspect]
     Indication: HIV INFECTION
     Dosage: 19JUN-31OCT99;400MG 01NOV99-24DEC00;420D 25APR05-19SEP08;1244D 20SEP08-CONT
     Route: 048
     Dates: start: 19990619
  8. LOPINAVIR/RITONAVIR [Suspect]
     Indication: HIV INFECTION
     Route: 048
     Dates: start: 20001225, end: 20040424
  9. EPIVIR [Suspect]
     Indication: HIV INFECTION
     Route: 048
     Dates: start: 20040515, end: 20080919
  10. ANTIHEMOPHILIC FACTOR (HUMAN) [Concomitant]
     Dates: start: 19991101

REACTIONS (3)
  - DIZZINESS [None]
  - PALPITATIONS [None]
  - PULMONARY HYPERTENSION [None]
